FAERS Safety Report 23026274 (Version 20)
Quarter: 2025Q1

REPORT INFORMATION
  Report Type: Report from Study
  Country: CL (occurrence: CL)
  Receive Date: 20231004
  Receipt Date: 20250310
  Transmission Date: 20250409
  Serious: Yes (Hospitalization, Other)
  Sender: SANOFI AVENTIS
  Company Number: CL-SA-SAC20230803000923

PATIENT
  Age: 32 Year
  Sex: Female
  Weight: 70 kg

DRUGS (20)
  1. IMIGLUCERASE [Suspect]
     Active Substance: IMIGLUCERASE
     Indication: Gaucher^s disease
     Dosage: 4000 IU (10 VIALS), QOW
     Route: 042
  2. IMIGLUCERASE [Suspect]
     Active Substance: IMIGLUCERASE
     Dosage: 4000 IU (10 VIALS), QOW
     Route: 042
  3. PREGABALIN [Concomitant]
     Active Substance: PREGABALIN
     Indication: Analgesic therapy
     Dosage: 150 MG, Q12H
     Route: 048
  4. BUPRENORPHINE [Concomitant]
     Active Substance: BUPRENORPHINE
     Indication: Pain management
     Dosage: UNK, TID
  5. BUPRENORPHINE [Concomitant]
     Active Substance: BUPRENORPHINE
     Route: 065
  6. CLONAZEPAM [Concomitant]
     Active Substance: CLONAZEPAM
     Indication: Analgesic therapy
     Dosage: 2 MG, QD
  7. CHLORPHENIRAMINE MALEATE [Concomitant]
     Active Substance: CHLORPHENIRAMINE MALEATE
     Indication: Premedication
     Dosage: 20 MG, QOW
     Route: 042
  8. CHLORPHENIRAMINE MALEATE [Concomitant]
     Active Substance: CHLORPHENIRAMINE MALEATE
     Route: 042
  9. BETAMETHASONE [Concomitant]
     Active Substance: BETAMETHASONE
     Indication: Premedication
     Route: 042
  10. LOSARTAN [Concomitant]
     Active Substance: LOSARTAN
     Indication: Hypertension
     Dosage: 50 MG, Q12H
     Route: 048
  11. DULOXETINE [Concomitant]
     Active Substance: DULOXETINE
     Indication: Pain
     Dosage: 60 1-0-1
  12. AMLODIPINE [Concomitant]
     Active Substance: AMLODIPINE BESYLATE
     Indication: Hypertension
     Dosage: 5 MG, QD
  13. AMLODIPINE [Concomitant]
     Active Substance: AMLODIPINE BESYLATE
     Dosage: 10 MG
  14. TRAMADOL [Concomitant]
     Active Substance: TRAMADOL
  15. ATORVASTATIN [Concomitant]
     Active Substance: ATORVASTATIN
     Dosage: 20 MG, Q12H
  16. QUETIAPINE [Concomitant]
     Active Substance: QUETIAPINE
     Dosage: 20 MG, HS
  17. QUETIAPINE [Concomitant]
     Active Substance: QUETIAPINE
     Dosage: 2 MG, QD
  18. HYDROCHLOROTHIAZIDE [Concomitant]
     Active Substance: HYDROCHLOROTHIAZIDE
     Dosage: 50 MG, QD
  19. FLUOXETINE [Concomitant]
     Active Substance: FLUOXETINE HYDROCHLORIDE
     Dosage: 60 MG, QD
  20. ACETAMINOPHEN [Concomitant]
     Active Substance: ACETAMINOPHEN
     Dosage: 1 G, QD

REACTIONS (25)
  - Hepatitis acute [Recovering/Resolving]
  - Hepatic lesion [Unknown]
  - Pyrexia [Unknown]
  - Hepatomegaly [Unknown]
  - Skin reaction [Unknown]
  - Rash [Unknown]
  - Fibromyalgia [Unknown]
  - Myalgia [Unknown]
  - Bone infarction [Recovering/Resolving]
  - Bone pain [Recovering/Resolving]
  - Spinal pain [Recovering/Resolving]
  - Pain in extremity [Unknown]
  - Blood pressure increased [Unknown]
  - Arthralgia [Not Recovered/Not Resolved]
  - Blood pressure increased [Recovered/Resolved]
  - Arthralgia [Recovering/Resolving]
  - Hypertension [Recovered/Resolved]
  - Hypertension [Recovering/Resolving]
  - Arthralgia [Recovering/Resolving]
  - Diastolic hypertension [Unknown]
  - Blood pressure diastolic increased [Unknown]
  - Arthritis enteropathic [Unknown]
  - Smear cervix abnormal [Unknown]
  - Cystitis [Recovered/Resolved]
  - Pyrexia [Recovered/Resolved]

NARRATIVE: CASE EVENT DATE: 20230101
